FAERS Safety Report 24584091 (Version 2)
Quarter: 2024Q4

REPORT INFORMATION
  Report Type: Report from Study
  Country: GB (occurrence: GB)
  Receive Date: 20241106
  Receipt Date: 20241127
  Transmission Date: 20250114
  Serious: Yes (Other)
  Sender: NOVARTIS
  Company Number: GB-002147023-NVSC2024GB081713

PATIENT
  Age: 44 Year
  Sex: Female

DRUGS (4)
  1. KESIMPTA [Suspect]
     Active Substance: OFATUMUMAB
     Indication: Relapsing-remitting multiple sclerosis
     Dosage: 20 MG, QMO
     Route: 058
     Dates: start: 20231010
  2. KESIMPTA [Suspect]
     Active Substance: OFATUMUMAB
     Dosage: 20 MG, OTHER (STARTING DOSES: ONCE A WEEK MAINTENANCE DOSES: ONCE A MONTH)
     Route: 058
  3. KESIMPTA [Suspect]
     Active Substance: OFATUMUMAB
     Dosage: 20 MG, QMO (MONTHLY)
     Route: 065
  4. KESIMPTA [Suspect]
     Active Substance: OFATUMUMAB
     Dosage: 20 MG, QMO
     Route: 030

REACTIONS (11)
  - Pneumonia [Not Recovered/Not Resolved]
  - Sepsis [Unknown]
  - Urinary tract infection [Unknown]
  - Otitis externa [Unknown]
  - Viral skin infection [Unknown]
  - Infection [Unknown]
  - Heart rate abnormal [Unknown]
  - Pyrexia [Unknown]
  - Skin infection [Not Recovered/Not Resolved]
  - COVID-19 [Unknown]
  - Incorrect route of product administration [Unknown]

NARRATIVE: CASE EVENT DATE: 20240410
